FAERS Safety Report 16774554 (Version 2)
Quarter: 2019Q3

REPORT INFORMATION
  Report Type: Report from Study
  Country: US (occurrence: US)
  Receive Date: 20190905
  Receipt Date: 20190909
  Transmission Date: 20191005
  Serious: Yes (Other)
  Sender: FDA-Public Use
  Company Number: US-SUN PHARMACEUTICAL INDUSTRIES LTD-2019R1-211042

PATIENT
  Age: 71 Year
  Sex: Male

DRUGS (1)
  1. YONSA [Suspect]
     Active Substance: ABIRATERONE ACETATE
     Indication: PROSTATE CANCER
     Dosage: 4 DOSAGE FORM, QD
     Route: 065
     Dates: start: 2019

REACTIONS (8)
  - Atrial flutter [Unknown]
  - Blood blister [Recovering/Resolving]
  - Heart rate irregular [Unknown]
  - Blood urine present [Recovering/Resolving]
  - Blood pressure increased [Unknown]
  - Thyroid disorder [Unknown]
  - Arrhythmia [Unknown]
  - Thrombocytopenia [Not Recovered/Not Resolved]

NARRATIVE: CASE EVENT DATE: 20190328
